FAERS Safety Report 8576506-0 (Version None)
Quarter: 2012Q3

REPORT INFORMATION
  Report Type: 
  Country: None (occurrence: None)
  Receive Date: 20120807
  Receipt Date: 20120730
  Transmission Date: 20120928
  Serious: Yes (Other)
  Sender: FDA-Public Use
  Company Number: AT-TEVA-351249ISR

PATIENT
  Age: 22 Year
  Sex: Female

DRUGS (1)
  1. FUROSEMIDE [Suspect]
     Dosage: 250 MILLIGRAM DAILY;
     Route: 065

REACTIONS (9)
  - RHABDOMYOLYSIS [None]
  - HYPOKALAEMIA [None]
  - RENAL FAILURE [None]
  - METABOLIC ALKALOSIS [None]
  - DRUG ABUSE [None]
  - ELECTROCARDIOGRAM ABNORMAL [None]
  - HYPONATRAEMIA [None]
  - DIARRHOEA [None]
  - VOMITING [None]
